FAERS Safety Report 8800269 (Version 1)
Quarter: 2012Q4

REPORT INFORMATION
  Report Type: 
  Country: US (occurrence: US)
  Receive Date: 20120921
  Receipt Date: 20120921
  Transmission Date: 20130627
  Serious: Yes (Hospitalization, Other)
  Sender: FDA-Public Use
  Company Number: US-SPECTRUM PHARMACEUTICALS, INC.-12-F-US-00134

PATIENT
  Age: 50 Year
  Sex: Male
  Weight: 85 kg

DRUGS (13)
  1. FLUOROURACIL [Suspect]
     Indication: HEPATIC NEOPLASM MALIGNANT RECURRENT
     Dosage: 370 mg/m2, on days two through five
     Route: 040
  2. FLUOROURACIL [Suspect]
     Dosage: 370 mg/m2, on days two through five
     Route: 040
  3. PACLITAXEL [Suspect]
     Indication: HEPATIC NEOPLASM MALIGNANT RECURRENT
     Dosage: 135 mg/m2, UNK
     Route: 042
  4. PACLITAXEL [Suspect]
     Dosage: 175 mg/m2, over three hours on day one
     Route: 042
  5. LEUCOVORIN CALCIUM [Suspect]
     Indication: HEPATIC NEOPLASM MALIGNANT RECURRENT
     Dosage: 500 mg/m2, qd for four days
     Route: 042
  6. LEUCOVORIN CALCIUM [Suspect]
     Dosage: 500 mg/m2, qd for four days
     Route: 042
  7. BENZODIAZEPINE [Suspect]
     Indication: SEDATIVE THERAPY
     Dosage: UNK
     Route: 065
  8. ACETAMINOPHEN W/CODEINE [Suspect]
     Indication: PRODUCT USED FOR UNKNOWN INDICATION
     Dosage: UNK
     Route: 065
  9. ONDANSETRON [Suspect]
     Indication: PRODUCT USED FOR UNKNOWN INDICATION
     Dosage: UNK
     Route: 065
  10. DIPHENOXYLATE/ATROPINE [Suspect]
     Indication: PRODUCT USED FOR UNKNOWN INDICATION
     Dosage: UNK
     Route: 065
  11. COUMADIN /00014802/ [Concomitant]
     Indication: ANTICOAGULANT THERAPY
     Dosage: UNK
     Route: 065
  12. METOCLOPRAMIDE [Concomitant]
     Indication: PRODUCT USED FOR UNKNOWN INDICATION
     Dosage: UNK
     Route: 065
  13. LACTULOSE [Concomitant]
     Indication: PRODUCT USED FOR UNKNOWN INDICATION
     Dosage: UNK
     Route: 065

REACTIONS (19)
  - Metabolic encephalopathy [Recovered/Resolved]
  - Hepatic encephalopathy [Recovered/Resolved]
  - Deep vein thrombosis [Recovered/Resolved]
  - Neutropenia [Recovered/Resolved]
  - Pneumonia aspiration [Recovered/Resolved]
  - Diarrhoea [Recovered/Resolved]
  - Vomiting [Recovered/Resolved]
  - Dehydration [Recovered/Resolved]
  - Confusional state [Recovered/Resolved]
  - Aspartate aminotransferase increased [Recovered/Resolved]
  - Alanine aminotransferase increased [Recovered/Resolved]
  - Bone marrow failure [Recovered/Resolved]
  - Nausea [Recovered/Resolved]
  - Disorientation [Recovered/Resolved]
  - Grand mal convulsion [Recovered/Resolved]
  - Transaminases increased [Recovered/Resolved]
  - Coma [Recovered/Resolved]
  - Depressed level of consciousness [Recovered/Resolved]
  - Hypokinesia [Recovered/Resolved]
